FAERS Safety Report 8849597 (Version 1)
Quarter: 2012Q4

REPORT INFORMATION
  Report Type: Spontaneous
  Country: US (occurrence: None)
  Receive Date: 20121018
  Receipt Date: 20121018
  Transmission Date: 20130627
  Serious: Yes (Other)
  Sender: FDA-Public Use
  Company Number: None

PATIENT
  Age: 34 Year
  Sex: Female
  Weight: 52.16 kg

DRUGS (1)
  1. MIRENA IUD [Suspect]

REACTIONS (7)
  - Abdominal pain [None]
  - Night sweats [None]
  - Chills [None]
  - Nausea [None]
  - Fatigue [None]
  - Complication of device removal [None]
  - Uterine cancer [None]
